FAERS Safety Report 10080215 (Version 1)
Quarter: 2014Q2

REPORT INFORMATION
  Report Type: Spontaneous
  Country: GB (occurrence: GB)
  Receive Date: 20140415
  Receipt Date: 20140415
  Transmission Date: 20141212
  Serious: Yes (Other)
  Sender: FDA-Public Use
  Company Number: PHHY2014GB042516

PATIENT
  Age: 49 Year
  Sex: Female
  Weight: 60.77 kg

DRUGS (3)
  1. METRONIDAZOLE [Suspect]
     Indication: TOOTH ABSCESS
     Dosage: 400 MG, TID (ONE TABLET 3 TIMES A DAY)
     Route: 048
     Dates: start: 20140319, end: 20140321
  2. IBUPROFEN [Concomitant]
     Dosage: 200 MG, (DURING 12 HOURS BEFORE METRONIDAZOLE)
  3. PARACETAMOL [Concomitant]
     Dosage: 500 MG, (DURING 12 HOURS BEFORE METRONIDAZOLE)

REACTIONS (17)
  - Sticky skin [Recovered/Resolved]
  - Musculoskeletal stiffness [Recovering/Resolving]
  - Abdominal pain upper [Recovered/Resolved]
  - Restlessness [Not Recovered/Not Resolved]
  - Limb discomfort [Recovering/Resolving]
  - Chills [Recovered/Resolved]
  - Cold sweat [Recovered/Resolved]
  - Gastric dilatation [Recovered/Resolved]
  - Parosmia [Recovered/Resolved]
  - Insomnia [Not Recovered/Not Resolved]
  - Hyperhidrosis [Recovered/Resolved]
  - Nausea [Not Recovered/Not Resolved]
  - Dysgeusia [Not Recovered/Not Resolved]
  - Tongue coated [Recovering/Resolving]
  - Decreased appetite [Recovered/Resolved]
  - Paraesthesia [Recovered/Resolved]
  - Diarrhoea [Recovered/Resolved]
